FAERS Safety Report 9520324 (Version 2)
Quarter: 2013Q3

REPORT INFORMATION
  Report Type: Spontaneous
  Country: US (occurrence: US)
  Receive Date: 20130912
  Receipt Date: 20130912
  Transmission Date: 20140515
  Serious: Yes (Hospitalization, Other)
  Sender: FDA-Public Use
  Company Number: US-ABBOTT-13P-163-1140412-00

PATIENT
  Age: 50 Year
  Sex: Female
  Weight: 50.85 kg

DRUGS (7)
  1. HUMIRA [Suspect]
     Indication: RHEUMATOID ARTHRITIS
     Route: 058
     Dates: start: 2010, end: 20121116
  2. HUMIRA [Suspect]
     Route: 058
     Dates: start: 20121214
  3. ALDACTONE [Concomitant]
     Indication: CARDIOMYOPATHY
     Dates: start: 201211
  4. ALDACTONE [Concomitant]
     Indication: CARDIAC FAILURE
  5. RAMIPRIL [Concomitant]
     Indication: PRODUCT USED FOR UNKNOWN INDICATION
  6. TOPROL [Concomitant]
     Indication: PRODUCT USED FOR UNKNOWN INDICATION
     Dates: start: 2010
  7. VITAMIN D [Concomitant]
     Route: 048

REACTIONS (5)
  - Ejection fraction abnormal [Recovering/Resolving]
  - Viral cardiomyopathy [Not Recovered/Not Resolved]
  - Cardiomegaly [Recovering/Resolving]
  - Bundle branch block [Recovered/Resolved]
  - Cardiac failure [Recovered/Resolved]
